FAERS Safety Report 4380153-4 (Version None)
Quarter: 2004Q2

REPORT INFORMATION
  Report Type: 
  Country: None (occurrence: None)
  Receive Date: 20040614
  Receipt Date: 20040409
  Transmission Date: 20050107
  Serious: No
  Sender: FDA-Public Use
  Company Number: M04-341-112

PATIENT
  Age: 49 Year
  Sex: Female
  Weight: 45 kg

DRUGS (17)
  1. VELCADE [Suspect]
     Indication: MULTIPLE MYELOMA
     Dosage: 1.8MG: INTRAVENOUS BOLUS
     Route: 040
     Dates: start: 20040309, end: 20040409
  2. ALBUTEROL [Concomitant]
  3. COMPANZINE(PROCHLORPERAZINE EDISYLATE) [Concomitant]
  4. DILANTIN [Concomitant]
  5. DURAGESIC [Concomitant]
  6. EVISTA [Concomitant]
  7. MINOXIDIL [Concomitant]
  8. NADOLOL [Concomitant]
  9. NEURONTIN [Concomitant]
  10. OXYCODONE [Concomitant]
  11. PIOGLITAZONE HCL [Concomitant]
  12. PULMICORT NEBUAMP(BUDESONIDE) [Concomitant]
  13. STARLIX [Concomitant]
  14. STOOL SOFTENER(DOCUSATE SODIUM) [Concomitant]
  15. SYNTHROID [Concomitant]
  16. THALIDOMIDE [Concomitant]
  17. VITAMIN E [Concomitant]

REACTIONS (5)
  - ALANINE AMINOTRANSFERASE INCREASED [None]
  - ASPARTATE AMINOTRANSFERASE INCREASED [None]
  - BLOOD ALKALINE PHOSPHATASE INCREASED [None]
  - BLOOD BILIRUBIN INCREASED [None]
  - LYMPHADENOPATHY [None]
